FAERS Safety Report 4320387-8 (Version None)
Quarter: 2004Q1

REPORT INFORMATION
  Report Type: 
  Country: None (occurrence: None)
  Receive Date: 20040317
  Receipt Date: 20040309
  Transmission Date: 20041129
  Serious: Yes (Hospitalization, Other)
  Sender: FDA-Public Use
  Company Number: 2004-03-0653

PATIENT
  Age: 8 Year
  Sex: Female
  Weight: 21 kg

DRUGS (3)
  1. GENTAMICIN [Suspect]
     Indication: STAPHYLOCOCCAL INFECTION
     Dosage: 6 MG/KG
  2. PENICILLIN G [Concomitant]
  3. METHICILLIN [Concomitant]

REACTIONS (5)
  - BLOOD MAGNESIUM DECREASED [None]
  - HYPOCALCAEMIA [None]
  - HYPOKALAEMIA [None]
  - METABOLIC ALKALOSIS [None]
  - TROUSSEAU'S SYNDROME [None]
